FAERS Safety Report 7803281-7 (Version None)
Quarter: 2011Q4

REPORT INFORMATION
  Report Type: 
  Country: None (occurrence: None)
  Receive Date: 20111007
  Receipt Date: 20110928
  Transmission Date: 20120403
  Serious: Yes (Hospitalization)
  Sender: FDA-Public Use
  Company Number: CH-BRISTOL-MYERS SQUIBB COMPANY-16108870

PATIENT
  Age: 34 Year
  Sex: Female

DRUGS (11)
  1. REMERON [Suspect]
     Indication: SCHIZOAFFECTIVE DISORDER
     Route: 048
  2. ZOLPIDEM [Suspect]
     Route: 048
  3. XYZAL [Concomitant]
     Route: 048
  4. NORVIR [Suspect]
     Indication: HIV INFECTION
     Route: 048
  5. METHADONE HCL [Suspect]
     Indication: ABNORMAL BEHAVIOUR
     Route: 048
  6. AKINETON [Concomitant]
     Route: 048
     Dates: end: 20110725
  7. VIREAD [Concomitant]
     Route: 048
  8. LAMIVUDINE (EPIVIR HBV) [Concomitant]
     Route: 048
  9. REYATAZ [Suspect]
     Indication: HIV INFECTION
     Route: 048
  10. OXAZEPAM [Suspect]
     Route: 048
     Dates: end: 20110818
  11. SEROQUEL [Suspect]
     Indication: SCHIZOAFFECTIVE DISORDER
     Dosage: 700MG-JULY19,100MGAUG10,325MG AUTUMN10,525MG APR11,425MG MAY11
     Route: 048
     Dates: start: 20100101, end: 20110818

REACTIONS (3)
  - DRUG INTERACTION [None]
  - SEDATION [None]
  - ELECTROCARDIOGRAM QT PROLONGED [None]
